FAERS Safety Report 8564689-8 (Version None)
Quarter: 2012Q3

REPORT INFORMATION
  Report Type: 
  Country: None (occurrence: None)
  Receive Date: 20120803
  Receipt Date: 20120731
  Transmission Date: 20120928
  Serious: Yes (Other)
  Sender: FDA-Public Use
  Company Number: ES-ELI_LILLY_AND_COMPANY-ES201208000137

PATIENT
  Age: 79 Year
  Sex: Male

DRUGS (1)
  1. CIALIS [Suspect]
     Dosage: 20 MG, UNKNOWN

REACTIONS (4)
  - ABDOMINAL PAIN UPPER [None]
  - SUICIDAL IDEATION [None]
  - CARDIAC OPERATION [None]
  - DRUG INEFFECTIVE [None]
